FAERS Safety Report 23898946 (Version 1)
Quarter: 2024Q2

REPORT INFORMATION
  Report Type: Spontaneous
  Country: US (occurrence: US)
  Receive Date: 20240525
  Receipt Date: 20240525
  Transmission Date: 20240716
  Serious: No
  Sender: FDA-Public Use
  Company Number: US-ABBVIE-5773147

PATIENT
  Age: 43 Year
  Sex: Male
  Weight: 91 kg

DRUGS (4)
  1. LASTACAFT [Suspect]
     Active Substance: ALCAFTADINE
     Indication: Seasonal allergy
     Dosage: FREQUENCY TEXT: 1 DROP EACH EYE TWICE A DAY?STRENGTH: 0.25%
     Route: 047
     Dates: start: 202404, end: 202404
  2. LASTACAFT [Suspect]
     Active Substance: ALCAFTADINE
     Indication: Seasonal allergy
     Dosage: FREQUENCY TEXT: 1 DROP EACH EYE TWICE A DAY?STRENGTH: 0.25%
     Route: 047
     Dates: start: 202405, end: 202405
  3. PREDNISOLONE ACETATE [Concomitant]
     Active Substance: PREDNISOLONE ACETATE
     Indication: Product used for unknown indication
     Route: 047
  4. ZYRTEC [Concomitant]
     Active Substance: CETIRIZINE HYDROCHLORIDE
     Indication: Product used for unknown indication

REACTIONS (8)
  - Swelling of eyelid [Recovered/Resolved]
  - Ocular hyperaemia [Recovered/Resolved]
  - Eye pruritus [Recovered/Resolved]
  - Eye irritation [Recovered/Resolved]
  - Swelling of eyelid [Recovered/Resolved]
  - Eye pruritus [Recovered/Resolved]
  - Eye irritation [Recovered/Resolved]
  - Ocular hyperaemia [Recovered/Resolved]

NARRATIVE: CASE EVENT DATE: 20240401
